FAERS Safety Report 10727146 (Version 2)
Quarter: 2015Q1

REPORT INFORMATION
  Report Type: Report from Study
  Country: US (occurrence: US)
  Receive Date: 20150121
  Receipt Date: 20150313
  Transmission Date: 20150721
  Serious: No
  Sender: FDA-Public Use
  Company Number: US-ACTELION-A-NJ2015-111143

PATIENT
  Age: 28 Year
  Sex: Female

DRUGS (1)
  1. MACITENTAN [Suspect]
     Active Substance: MACITENTAN
     Indication: COR PULMONALE CHRONIC
     Dosage: 10 MG, QD
     Route: 048
     Dates: start: 20141223

REACTIONS (5)
  - Headache [Unknown]
  - Jaundice [Unknown]
  - Pruritus [Unknown]
  - Mood swings [Unknown]
  - Nasal congestion [Unknown]
